FAERS Safety Report 4314944-2 (Version None)
Quarter: 2004Q1

REPORT INFORMATION
  Report Type: 
  Country: None (occurrence: None)
  Receive Date: 20040310
  Receipt Date: 20040310
  Transmission Date: 20041129
  Serious: No
  Sender: FDA-Public Use
  Company Number: None

PATIENT
  Age: 56 Year
  Sex: Female

DRUGS (12)
  1. TRICOR [Suspect]
     Indication: HYPERLIPIDAEMIA
     Dosage: 1 QD ORAL
     Route: 048
     Dates: start: 20040218, end: 20040303
  2. PREDNISONE [Concomitant]
  3. ACIPHEX [Concomitant]
  4. CRYSTALLINE VIT B12 INJ [Concomitant]
  5. ALBUTEROL [Concomitant]
  6. ZOLOFT [Concomitant]
  7. PREMARIN [Concomitant]
  8. NORVASC [Concomitant]
  9. VALIUM [Concomitant]
  10. ADVAIR DISKUS 100/50 [Concomitant]
  11. ASACOL [Concomitant]
  12. REMICADE [Concomitant]

REACTIONS (2)
  - RASH GENERALISED [None]
  - RASH PRURITIC [None]
